FAERS Safety Report 23235447 (Version 1)
Quarter: 2023Q4

REPORT INFORMATION
  Report Type: Spontaneous
  Country: US (occurrence: None)
  Receive Date: 20231127
  Receipt Date: 20231127
  Transmission Date: 20240110
  Serious: Yes (Hospitalization)
  Sender: FDA-Public Use
  Company Number: None

PATIENT
  Age: 28 Year
  Sex: Male
  Weight: 120 kg

DRUGS (7)
  1. SULFUR HEXAFLUORIDE [Suspect]
     Active Substance: SULFUR HEXAFLUORIDE
     Indication: Cardiac imaging procedure
     Dosage: 2 ML MILLITRE ONCE INTRAVENOUS ?
     Route: 042
     Dates: start: 20231122, end: 20231122
  2. CEFTRIAXONE [Concomitant]
     Active Substance: CEFTRIAXONE\CEFTRIAXONE SODIUM
     Dates: start: 20231120, end: 20231122
  3. LINEZOLID [Concomitant]
     Active Substance: LINEZOLID
     Dates: start: 20231120, end: 20231122
  4. FUROSEMIDE [Concomitant]
     Active Substance: FUROSEMIDE
     Dates: start: 20231121, end: 20231123
  5. PREDNISONE [Concomitant]
     Active Substance: PREDNISONE
     Dates: start: 20231118, end: 20231123
  6. ACETAMINOPHEN\OXYCODONE HYDROCHLORIDE [Concomitant]
     Active Substance: ACETAMINOPHEN\OXYCODONE HYDROCHLORIDE
     Dates: start: 20231118, end: 20231123
  7. SPIRONOLACTONE [Concomitant]
     Active Substance: SPIRONOLACTONE
     Dates: start: 20231117, end: 20231123

REACTIONS (10)
  - Feeling abnormal [None]
  - Feeling hot [None]
  - Contrast media reaction [None]
  - Balance disorder [None]
  - Unresponsive to stimuli [None]
  - Syncope [None]
  - Seizure [None]
  - Urinary incontinence [None]
  - Tongue biting [None]
  - Lethargy [None]

NARRATIVE: CASE EVENT DATE: 20231122
